FAERS Safety Report 7372163-X (Version None)
Quarter: 2011Q1

REPORT INFORMATION
  Report Type: 
  Country: None (occurrence: None)
  Receive Date: 20110324
  Receipt Date: 20110314
  Transmission Date: 20110831
  Serious: Yes (Other)
  Sender: FDA-Public Use
  Company Number: DE-SANOFI-AVENTIS-2011SA015403

PATIENT
  Age: 62 Year
  Sex: Male

DRUGS (1)
  1. MULTAQ [Suspect]
     Route: 065
     Dates: start: 20100101

REACTIONS (4)
  - FLATULENCE [None]
  - HALLUCINATION [None]
  - NIGHTMARE [None]
  - GASTROINTESTINAL DISORDER [None]
